FAERS Safety Report 8192794 (Version 2)
Quarter: 2012Q4

REPORT INFORMATION
  Report Type: 
  Country: FR (occurrence: FR)
  Receive Date: 20111021
  Receipt Date: 20121101
  Transmission Date: 20130627
  Serious: Yes (Death, Hospitalization, Other)
  Sender: FDA-Public Use
  Company Number: FR-UCBSA-043387

PATIENT
  Age: 86 Year
  Sex: Female

DRUGS (2)
  1. KEPPRA [Suspect]
  2. KEPPRA [Suspect]
     Dosage: 1G, OVERDOSE
     Route: 048
     Dates: start: 2009, end: 2009

REACTIONS (4)
  - Death [Fatal]
  - Coma [Recovered/Resolved]
  - Meningioma [Not Recovered/Not Resolved]
  - Overdose [Unknown]
